FAERS Safety Report 5728100-4 (Version None)
Quarter: 2008Q2

REPORT INFORMATION
  Report Type: 
  Country: None (occurrence: None)
  Receive Date: 20080505
  Receipt Date: 20080425
  Transmission Date: 20081010
  Serious: Yes (Other)
  Sender: FDA-Public Use
  Company Number: US-PFIZER INC-2008037353

PATIENT
  Sex: Female
  Weight: 59 kg

DRUGS (6)
  1. CADUET [Suspect]
     Indication: HYPERTENSION
  2. NAPROXEN [Concomitant]
  3. LOVASTATIN [Concomitant]
  4. CALCIUM [Concomitant]
  5. FISH OIL [Concomitant]
  6. CENTRUM SILVER [Concomitant]

REACTIONS (6)
  - BLOOD PRESSURE INCREASED [None]
  - DRUG INEFFECTIVE [None]
  - ERYTHEMA [None]
  - JOINT SWELLING [None]
  - PAIN [None]
  - ULCER [None]
